FAERS Safety Report 24679622 (Version 2)
Quarter: 2025Q1

REPORT INFORMATION
  Report Type: Spontaneous
  Country: ES (occurrence: ES)
  Receive Date: 20241129
  Receipt Date: 20250106
  Transmission Date: 20250409
  Serious: Yes (Hospitalization)
  Sender: MYLAN
  Company Number: ES-KRKA-ES2024K18741SPO

PATIENT
  Age: 71 Year
  Sex: Male
  Weight: 59 kg

DRUGS (10)
  1. OLANZAPINE [Suspect]
     Active Substance: OLANZAPINE
     Indication: Nausea
     Dosage: 5 MILLIGRAM, QD, 5 MG, PER DAY
     Route: 048
     Dates: start: 20240814
  2. OLANZAPINE [Suspect]
     Active Substance: OLANZAPINE
     Route: 048
     Dates: end: 20240827
  3. SIGVOTATUG VEDOTIN [Concomitant]
     Active Substance: SIGVOTATUG VEDOTIN
     Indication: Lung neoplasm malignant
     Dosage: 127.44 MILLIGRAM, BIWEEKLY, 127.44 MG, EVERY 2 WEEKS
     Route: 042
     Dates: start: 20240704, end: 20240807
  4. PEMBROLIZUMAB [Concomitant]
     Active Substance: PEMBROLIZUMAB
     Indication: Lung neoplasm malignant
     Route: 042
     Dates: start: 20240704, end: 20240704
  5. TAMSULOSIN [Concomitant]
     Active Substance: TAMSULOSIN
     Indication: Benign prostatic hyperplasia
     Route: 065
     Dates: start: 20210804
  6. AMLODIPINE [Concomitant]
     Active Substance: AMLODIPINE BESYLATE
     Indication: Hypertension
     Route: 065
     Dates: start: 20210914
  7. PERINDOPRIL [Concomitant]
     Active Substance: PERINDOPRIL
     Indication: Hypertension
     Route: 065
     Dates: start: 20210914
  8. ZOLPIDEM [Concomitant]
     Active Substance: ZOLPIDEM TARTRATE
     Indication: Insomnia
     Route: 065
     Dates: start: 20240704
  9. BROMAZEPAM [Concomitant]
     Active Substance: BROMAZEPAM
     Indication: Anxiety
     Route: 065
     Dates: start: 20240704
  10. ALLOPURINOL [Concomitant]
     Active Substance: ALLOPURINOL
     Indication: Hyperuricaemia
     Route: 065

REACTIONS (1)
  - Decreased appetite [Recovering/Resolving]

NARRATIVE: CASE EVENT DATE: 20240830
